FAERS Safety Report 7547724-5 (Version None)
Quarter: 2011Q2

REPORT INFORMATION
  Report Type: 
  Country: None (occurrence: None)
  Receive Date: 20110614
  Receipt Date: 20110505
  Transmission Date: 20111010
  Serious: No
  Sender: FDA-Public Use
  Company Number: US-BAYER-2011-040139

PATIENT
  Sex: Female
  Weight: 68 kg

DRUGS (2)
  1. ALEVE (CAPLET) [Suspect]
     Indication: ARTHRALGIA
     Dosage: 1 DF, BID
     Route: 048
     Dates: start: 20110428, end: 20110505
  2. ADVIL COLD [Concomitant]

REACTIONS (1)
  - CONSTIPATION [None]
